FAERS Safety Report 5725568-4 (Version None)
Quarter: 2008Q2

REPORT INFORMATION
  Report Type: 
  Country: None (occurrence: None)
  Receive Date: 20080501
  Receipt Date: 20080421
  Transmission Date: 20081010
  Serious: Yes (Other)
  Sender: FDA-Public Use
  Company Number: AU-ELI_LILLY_AND_COMPANY-AU200712001355

PATIENT
  Sex: Female
  Weight: 99 kg

DRUGS (7)
  1. LISPRO 25LIS75NPL [Suspect]
     Indication: DIABETES MELLITUS
     Dosage: 32 IU, EACH MORNING
     Route: 058
     Dates: start: 20060814
  2. LISPRO 25LIS75NPL [Suspect]
     Dosage: 20 IU, EACH EVENING
     Route: 058
     Dates: start: 20060814
  3. ROSIGLITAZONE [Concomitant]
     Indication: TYPE 1 DIABETES MELLITUS
     Dosage: 4 MG, UNKNOWN
     Route: 065
  4. METFORMIN HCL [Concomitant]
     Indication: TYPE 1 DIABETES MELLITUS
     Dosage: 3000 MG, UNKNOWN
     Route: 065
  5. AVAPRO [Concomitant]
     Indication: HYPERTENSION
     Dosage: 150 MG, UNKNOWN
     Route: 065
  6. LIPITOR [Concomitant]
     Indication: HYPERCHOLESTEROLAEMIA
     Dosage: 40 MG, UNKNOWN
     Route: 065
  7. TRAMADOL HCL [Concomitant]
     Indication: PAIN
     Dosage: UNK, UNKNOWN
     Route: 065
     Dates: start: 20070420, end: 20070429

REACTIONS (2)
  - FALL [None]
  - RADIUS FRACTURE [None]
